FAERS Safety Report 12092583 (Version 18)
Quarter: 2017Q1

REPORT INFORMATION
  Report Type: Report from Study
  Country: CA (occurrence: CA)
  Receive Date: 20160219
  Receipt Date: 20170106
  Transmission Date: 20170428
  Serious: Yes (Other)
  Sender: FDA-Public Use
  Company Number: CA-ROCHE-1696945

PATIENT
  Age: 65 Year
  Sex: Female
  Weight: 96 kg

DRUGS (18)
  1. APO-LANSOPRAZOLE [Concomitant]
     Active Substance: LANSOPRAZOLE
     Route: 065
  2. FOLIC ACID. [Concomitant]
     Active Substance: FOLIC ACID
  3. LIPITOR [Concomitant]
     Active Substance: ATORVASTATIN CALCIUM
  4. BENADRYL [Concomitant]
     Active Substance: DIPHENHYDRAMINE HYDROCHLORIDE
     Route: 048
     Dates: start: 20141203
  5. ASPIRIN. [Concomitant]
     Active Substance: ASPIRIN
     Dosage: 1 TABLET
     Route: 065
  6. ACTEMRA [Suspect]
     Active Substance: TOCILIZUMAB
     Indication: RHEUMATOID ARTHRITIS
     Route: 042
     Dates: start: 20120627
  7. APO-BISOPROLOL [Concomitant]
     Active Substance: BISOPROLOL FUMARATE
     Dosage: 1 TABLET
     Route: 065
  8. HYDROMORPH [Concomitant]
     Active Substance: HYDROMORPHONE
  9. PREDNISONE. [Concomitant]
     Active Substance: PREDNISONE
     Route: 065
  10. BENADRYL [Concomitant]
     Active Substance: DIPHENHYDRAMINE HYDROCHLORIDE
  11. APO-LISINOPRIL [Concomitant]
     Active Substance: LISINOPRIL
     Route: 065
  12. LIPITOR [Concomitant]
     Active Substance: ATORVASTATIN CALCIUM
     Route: 065
  13. PIOGLITAZONE. [Concomitant]
     Active Substance: PIOGLITAZONE
     Dosage: 1 TABLET
     Route: 065
  14. APO-LISINOPRIL [Concomitant]
     Active Substance: LISINOPRIL
     Route: 065
  15. METHOTREXATE. [Concomitant]
     Active Substance: METHOTREXATE
     Dosage: 3 TABLETS
     Route: 065
  16. METFORMIN [Concomitant]
     Active Substance: METFORMIN HYDROCHLORIDE
  17. GABAPENTIN. [Concomitant]
     Active Substance: GABAPENTIN
  18. SPIRONOLACTONE. [Concomitant]
     Active Substance: SPIRONOLACTONE

REACTIONS (23)
  - Deafness unilateral [Unknown]
  - Urticaria [Recovered/Resolved]
  - Cyst [Recovering/Resolving]
  - Rheumatoid arthritis [Not Recovered/Not Resolved]
  - Cough [Recovering/Resolving]
  - Urticaria [Recovered/Resolved]
  - Toothache [Recovered/Resolved]
  - Infusion related reaction [Unknown]
  - Injection site extravasation [Unknown]
  - Dental caries [Unknown]
  - Middle ear effusion [Recovering/Resolving]
  - Blood pressure systolic increased [Unknown]
  - Injection site bruising [Unknown]
  - Herpes zoster [Unknown]
  - Blood pressure diastolic decreased [Unknown]
  - Nasopharyngitis [Recovering/Resolving]
  - Cough [Not Recovered/Not Resolved]
  - Nasopharyngitis [Recovered/Resolved]
  - Urticaria [Unknown]
  - Asthenia [Unknown]
  - Throat irritation [Not Recovered/Not Resolved]
  - Musculoskeletal pain [Unknown]
  - Blood pressure systolic abnormal [Unknown]

NARRATIVE: CASE EVENT DATE: 2016
